FAERS Safety Report 13371359 (Version 2)
Quarter: 2017Q2

REPORT INFORMATION
  Report Type: Spontaneous
  Country: CZ (occurrence: CZ)
  Receive Date: 20170324
  Receipt Date: 20170410
  Transmission Date: 20170830
  Serious: Yes (Life-Threatening, Hospitalization, Other)
  Sender: FDA-Public Use
  Company Number: CZ-GLAXOSMITHKLINE-CZ2017041402

PATIENT
  Age: 15 Year
  Sex: Female

DRUGS (2)
  1. ORFIRIL LONG [Concomitant]
     Active Substance: VALPROIC ACID
     Indication: EPILEPSY
     Dosage: 300-0-450 MG
     Route: 065
  2. LAMICTAL [Suspect]
     Active Substance: LAMOTRIGINE
     Indication: EPILEPSY
     Dosage: 1-0-0
     Route: 065
     Dates: start: 20170221

REACTIONS (10)
  - Rash vesicular [Unknown]
  - Pyrexia [Unknown]
  - Cough [Unknown]
  - Septic shock [Unknown]
  - Skin exfoliation [Unknown]
  - Rash erythematous [Unknown]
  - Rhinitis [Unknown]
  - Dyspnoea [Unknown]
  - Toxic epidermal necrolysis [Not Recovered/Not Resolved]
  - Hypothermia [Unknown]

NARRATIVE: CASE EVENT DATE: 20170224
